FAERS Safety Report 7435865-2 (Version None)
Quarter: 2011Q2

REPORT INFORMATION
  Report Type: 
  Country: None (occurrence: None)
  Receive Date: 20110425
  Receipt Date: 20110412
  Transmission Date: 20111010
  Serious: Yes (Hospitalization)
  Sender: FDA-Public Use
  Company Number: JP-AMGEN-JPNCT2011001530

PATIENT
  Age: 70 Year
  Sex: Male
  Weight: 73 kg

DRUGS (16)
  1. FENTOS TAPE [Concomitant]
     Dosage: UNK
     Route: 062
  2. PREDONINE [Concomitant]
     Dosage: UNK
     Route: 048
  3. FLUOROURACIL [Suspect]
     Indication: COLORECTAL CANCER
     Route: 040
     Dates: start: 20101006, end: 20101111
  4. CALCIUM LEVOFOLINATE [Suspect]
     Indication: COLORECTAL CANCER
     Route: 041
     Dates: start: 20101006, end: 20101111
  5. RINDERON-VG [Concomitant]
     Route: 062
  6. CORTICOSTEROIDS [Concomitant]
     Indication: PROPHYLAXIS
     Dosage: UNK
     Route: 065
  7. HIRUDOID [Concomitant]
     Dosage: UNK
     Route: 062
  8. ALESION [Concomitant]
     Dosage: UNK
     Route: 048
  9. KINDAVATE [Concomitant]
     Dosage: UNK
     Route: 062
  10. PANITUMUMAB [Suspect]
     Indication: COLORECTAL CANCER
     Dosage: 6 MG/KG, Q2WK
     Route: 041
     Dates: start: 20101006, end: 20101006
  11. OPSO [Concomitant]
     Dosage: UNK
     Route: 048
  12. PANITUMUMAB [Suspect]
     Dosage: 6 MG/KG, Q2WK
     Dates: start: 20101207, end: 20101228
  13. FLUOROURACIL [Suspect]
     Route: 041
     Dates: start: 20101006, end: 20101111
  14. PANITUMUMAB [Suspect]
     Dosage: 6 MG/KG, Q2WK
     Route: 041
     Dates: start: 20101109, end: 20101109
  15. RINDERON-VG [Concomitant]
     Dosage: UNK
     Route: 062
  16. IRINOTECAN HYDROCHLORIDE [Suspect]
     Indication: COLORECTAL CANCER
     Route: 041
     Dates: start: 20101006, end: 20101111

REACTIONS (2)
  - HERPES ZOSTER [None]
  - FEBRILE NEUTROPENIA [None]
